FAERS Safety Report 7365815-9 (Version None)
Quarter: 2011Q1

REPORT INFORMATION
  Report Type: 
  Country: None (occurrence: None)
  Receive Date: 20110322
  Receipt Date: 20110314
  Transmission Date: 20110831
  Serious: Yes (Other)
  Sender: FDA-Public Use
  Company Number: US-US-EMD SERONO, INC.-7014445

PATIENT
  Sex: Female

DRUGS (2)
  1. REBIF [Suspect]
     Indication: MULTIPLE SCLEROSIS
     Route: 058
     Dates: start: 20100527, end: 20100812
  2. REBIF [Suspect]
     Route: 058
     Dates: start: 20100916, end: 20100101

REACTIONS (7)
  - HYPOAESTHESIA [None]
  - FALL [None]
  - WHITE BLOOD CELL COUNT INCREASED [None]
  - LIVER FUNCTION TEST ABNORMAL [None]
  - ANKLE FRACTURE [None]
  - PARAESTHESIA [None]
  - INAPPROPRIATE SCHEDULE OF DRUG ADMINISTRATION [None]
